FAERS Safety Report 12410533 (Version 1)
Quarter: 2016Q2

REPORT INFORMATION
  Report Type: Spontaneous
  Country: US (occurrence: US)
  Receive Date: 20160527
  Receipt Date: 20160527
  Transmission Date: 20160815
  Serious: No
  Sender: FDA-Public Use
  Company Number: US-AMGEN-USASP2016066283

PATIENT
  Age: 34 Year
  Sex: Female

DRUGS (1)
  1. ENBREL [Suspect]
     Active Substance: ETANERCEPT
     Indication: ANKYLOSING SPONDYLITIS
     Dosage: UNK UNK, QWK
     Route: 065

REACTIONS (6)
  - Injection site swelling [Unknown]
  - Pain [Not Recovered/Not Resolved]
  - Injection site induration [Unknown]
  - Injection site vesicles [Unknown]
  - Anxiety [Unknown]
  - Condition aggravated [Unknown]
